FAERS Safety Report 7852331-0 (Version None)
Quarter: 2011Q4

REPORT INFORMATION
  Report Type: 
  Country: None (occurrence: None)
  Receive Date: 20111026
  Receipt Date: 20111017
  Transmission Date: 20120403
  Serious: Yes (Hospitalization, Other)
  Sender: FDA-Public Use
  Company Number: US-US-EMD SERONO, INC.-7001666

PATIENT
  Sex: Female

DRUGS (5)
  1. INSULIN [Concomitant]
     Indication: BLOOD GLUCOSE INCREASED
  2. TRILEPTAL [Concomitant]
     Dates: start: 20100101
  3. REBIF [Suspect]
     Indication: MULTIPLE SCLEROSIS
     Route: 058
     Dates: start: 20090828
  4. TRILEPTAL [Concomitant]
     Indication: CONVULSION
     Dates: end: 20100101
  5. KEPPRA [Concomitant]
     Indication: CLONUS

REACTIONS (12)
  - URINARY TRACT INFECTION [None]
  - DYSKINESIA [None]
  - DIARRHOEA [None]
  - FEELING DRUNK [None]
  - HEAD INJURY [None]
  - CONVULSION [None]
  - AMMONIA INCREASED [None]
  - BLOOD GLUCOSE INCREASED [None]
  - DIZZINESS [None]
  - MOBILITY DECREASED [None]
  - FALL [None]
  - PARAESTHESIA [None]
